FAERS Safety Report 7997427-8 (Version None)
Quarter: 2011Q4

REPORT INFORMATION
  Report Type: 
  Country: None (occurrence: None)
  Receive Date: 20111221
  Receipt Date: 20111027
  Transmission Date: 20120403
  Serious: No
  Sender: FDA-Public Use
  Company Number: US-MYLANLABS-2011S1022340

PATIENT
  Age: 72 Year
  Sex: Female

DRUGS (6)
  1. LEVOFLOXACIN [Suspect]
     Indication: SINUSITIS
     Route: 048
     Dates: start: 20111020, end: 20111021
  2. LEVOFLOXACIN [Suspect]
     Indication: INFLUENZA
     Route: 048
     Dates: start: 20111020, end: 20111021
  3. LEVOFLOXACIN [Suspect]
     Route: 048
     Dates: start: 20111022, end: 20111022
  4. ASPIRIN [Concomitant]
  5. LEVOFLOXACIN [Suspect]
     Route: 048
     Dates: start: 20111022, end: 20111022
  6. BYSTOLIC [Concomitant]

REACTIONS (3)
  - ARTHRALGIA [None]
  - MYALGIA [None]
  - REACTION TO DRUG EXCIPIENTS [None]
